FAERS Safety Report 13014201 (Version 1)
Quarter: 2016Q4

REPORT INFORMATION
  Report Type: Report from Study
  Country: None (occurrence: NL)
  Receive Date: 20161209
  Receipt Date: 20161209
  Transmission Date: 20170207
  Serious: Yes (Other)
  Sender: FDA-Public Use
  Company Number: NL-ABBVIE-16K-114-1803918-00

PATIENT
  Sex: Male

DRUGS (1)
  1. DUODOPA [Suspect]
     Active Substance: CARBIDOPA\LEVODOPA
     Indication: PRODUCT USED FOR UNKNOWN INDICATION
     Dosage: MORNING DOSE:  6  CONTINUOUS DOSE:?4     EXTRA DOSE: 3.7   NIGHT DOSE: 3
     Route: 050
     Dates: start: 20081128

REACTIONS (8)
  - Gait disturbance [Not Recovered/Not Resolved]
  - Dyskinesia [Recovering/Resolving]
  - Stoma site extravasation [Not Recovered/Not Resolved]
  - Nocturia [Not Recovered/Not Resolved]
  - Fatigue [Unknown]
  - Speech disorder [Recovering/Resolving]
  - Muscle rigidity [Not Recovered/Not Resolved]
  - Muscle tightness [Unknown]
